FAERS Safety Report 8902736 (Version 2)
Quarter: 2012Q4

REPORT INFORMATION
  Report Type: 
  Country: US (occurrence: US)
  Receive Date: 20121112
  Receipt Date: 20121119
  Transmission Date: 20130627
  Serious: Yes (Hospitalization)
  Sender: FDA-Public Use
  Company Number: US-BAYER-2012-116519

PATIENT
  Age: 49 Year
  Sex: Female
  Weight: 90.7 kg

DRUGS (4)
  1. ALEVE SMOOTH GELS [Suspect]
     Indication: ARTHRITIS
     Dosage: 1 TAB, BID
     Route: 048
  2. LANTUS [Concomitant]
  3. METFORMIN [Concomitant]
  4. LOVASTATIN [Concomitant]

REACTIONS (8)
  - Myocardial infarction [Recovered/Resolved]
  - Chest pain [Recovered/Resolved]
  - Cardiac flutter [Recovered/Resolved]
  - Pain [Recovered/Resolved]
  - Incorrect drug administration duration [None]
  - Back pain [None]
  - Dysuria [None]
  - Blood pressure increased [None]
